FAERS Safety Report 8237829-8 (Version None)
Quarter: 2012Q1

REPORT INFORMATION
  Report Type: 
  Country: None (occurrence: None)
  Receive Date: 20120327
  Receipt Date: 20120320
  Transmission Date: 20120608
  Serious: Yes (Hospitalization)
  Sender: FDA-Public Use
  Company Number: FR-ELI_LILLY_AND_COMPANY-FR201011005420

PATIENT
  Sex: Male
  Weight: 60 kg

DRUGS (8)
  1. ATARAX [Concomitant]
  2. BRICANYL [Concomitant]
  3. PEMETREXED [Suspect]
     Indication: NON-SMALL CELL LUNG CANCER
     Dosage: 925 MG, OTHER
     Route: 042
     Dates: start: 20101018
  4. MORPHINE SULFATE [Concomitant]
     Dosage: 10 D/F, UNK
  5. NECITUMUMAB (11F8) (LY3012211) [Suspect]
     Indication: NON-SMALL CELL LUNG CANCER
     Dosage: 800 MG, OTHER
     Route: 042
     Dates: start: 20101018
  6. CISPLATIN [Suspect]
     Indication: NON-SMALL CELL LUNG CANCER
     Dosage: 160 MG, OTHER
     Route: 042
     Dates: start: 20101018
  7. MORPHINE SULFATE [Concomitant]
     Dosage: 30 D/F, UNK
  8. ATROVENT [Concomitant]

REACTIONS (2)
  - SINUS TACHYCARDIA [None]
  - DYSPNOEA [None]
